FAERS Safety Report 23134921 (Version 1)
Quarter: 2023Q4

REPORT INFORMATION
  Report Type: Spontaneous
  Country: US (occurrence: None)
  Receive Date: 20231031
  Receipt Date: 20231031
  Transmission Date: 20240109
  Serious: Yes (Disabling)
  Sender: FDA-Public Use
  Company Number: None

PATIENT
  Age: 31 Year
  Sex: Female
  Weight: 48.6 kg

DRUGS (1)
  1. BOTULINUM TOXIN NOS [Suspect]
     Active Substance: BOTULINUM TOXIN NOS
     Indication: Temporomandibular joint syndrome
     Route: 030
     Dates: start: 20220828

REACTIONS (3)
  - Dysphagia [None]
  - Hypophagia [None]
  - Paralysis [None]
